FAERS Safety Report 14030555 (Version 1)
Quarter: 2017Q4

REPORT INFORMATION
  Report Type: Spontaneous
  Country: US (occurrence: US)
  Receive Date: 20171002
  Receipt Date: 20171002
  Transmission Date: 20180321
  Serious: No
  Sender: FDA-Public Use
  Company Number: US-MAYNE PHARMA-2017MYN001432

PATIENT

DRUGS (2)
  1. FENTANYL. [Suspect]
     Active Substance: FENTANYL
     Indication: SPINAL PAIN
     Dosage: 1 DF, Q72H
     Route: 062
  2. OXYCODONE [Concomitant]
     Active Substance: OXYCODONE
     Dosage: 20 MG, QID

REACTIONS (2)
  - Drug ineffective [Unknown]
  - Product adhesion issue [Not Recovered/Not Resolved]

NARRATIVE: CASE EVENT DATE: 20170806
